FAERS Safety Report 9586363 (Version 1)
Quarter: 2013Q4

REPORT INFORMATION
  Report Type: Spontaneous
  Country: US (occurrence: US)
  Receive Date: 20131003
  Receipt Date: 20131003
  Transmission Date: 20140711
  Serious: Yes (Hospitalization, Other)
  Sender: FDA-Public Use
  Company Number: US-B.I. PHARMACEUTICALS,INC./RIDGEFIELD-2013-BI-30155BP

PATIENT
  Age: 63 Year
  Sex: Male
  Weight: 73 kg

DRUGS (1)
  1. SPIRIVA [Suspect]
     Indication: CHRONIC OBSTRUCTIVE PULMONARY DISEASE
     Dosage: 18 MCG
     Route: 055
     Dates: start: 2010

REACTIONS (6)
  - Chronic obstructive pulmonary disease [Recovered/Resolved]
  - Haemorrhage [Recovered/Resolved]
  - Colon cancer [Recovered/Resolved]
  - Myocardial infarction [Recovered/Resolved]
  - Hypotension [Recovered/Resolved]
  - Chronic obstructive pulmonary disease [Not Recovered/Not Resolved]
